FAERS Safety Report 8103908-9 (Version None)
Quarter: 2012Q1

REPORT INFORMATION
  Report Type: 
  Country: None (occurrence: None)
  Receive Date: 20120130
  Receipt Date: 20120118
  Transmission Date: 20120608
  Serious: Yes (Hospitalization)
  Sender: FDA-Public Use
  Company Number: FR-UCBSA-049841

PATIENT
  Age: 48 Year
  Sex: Female

DRUGS (3)
  1. NEXIUM [Suspect]
     Route: 048
     Dates: start: 20110701, end: 20110926
  2. KEPPRA [Suspect]
     Route: 048
     Dates: start: 20110705, end: 20110926
  3. LASIX [Suspect]
     Indication: CIRRHOSIS ALCOHOLIC
     Route: 048
     Dates: start: 20060101, end: 20110926

REACTIONS (1)
  - AGRANULOCYTOSIS [None]
